FAERS Safety Report 10857962 (Version 1)
Quarter: 2015Q1

REPORT INFORMATION
  Report Type: Spontaneous
  Country: FR (occurrence: FR)
  Receive Date: 20150223
  Receipt Date: 20150223
  Transmission Date: 20150721
  Serious: Yes (Hospitalization, Disabling)
  Sender: FDA-Public Use
  Company Number: FR-MYLANLABS-2015M1005598

PATIENT

DRUGS (1)
  1. QUININE [Suspect]
     Active Substance: QUININE
     Indication: MALARIA
     Dosage: 1300 MG, TID
     Route: 042

REACTIONS (5)
  - Hypoacusis [Unknown]
  - Tinnitus [Unknown]
  - Drug prescribing error [Recovering/Resolving]
  - Accidental overdose [Recovering/Resolving]
  - Blindness [Recovering/Resolving]
